FAERS Safety Report 6495162-9 (Version None)
Quarter: 2009Q4

REPORT INFORMATION
  Report Type: 
  Country: None (occurrence: None)
  Receive Date: 20091214
  Receipt Date: 20090611
  Transmission Date: 20100525
  Serious: No
  Sender: FDA-Public Use
  Company Number: US-BRISTOL-MYERS SQUIBB COMPANY-14616213

PATIENT
  Age: 51 Year
  Sex: Male

DRUGS (7)
  1. ABILIFY [Suspect]
     Indication: BIPOLAR DISORDER
     Dosage: INCREASED TO 20MG 10 DAYS LATER
     Route: 048
     Dates: start: 20090502
  2. ZYPREXA [Suspect]
     Dosage: TITRATED FROM 35MG QD TO 20MG QD
  3. CORGARD [Concomitant]
  4. DEPAKOTE [Concomitant]
  5. COGENTIN [Concomitant]
  6. NAVANE [Concomitant]
     Indication: BIPOLAR DISORDER
  7. COREG [Concomitant]

REACTIONS (3)
  - ANGER [None]
  - CONFUSIONAL STATE [None]
  - HOSTILITY [None]
